FAERS Safety Report 7763194 (Version 5)
Quarter: 2012Q4

REPORT INFORMATION
  Report Type: 
  Country: US (occurrence: US)
  Receive Date: 20110118
  Receipt Date: 20120905
  Transmission Date: 20130627
  Serious: Yes (Life-Threatening, Other)
  Sender: FDA-Public Use
  Company Number: US-BAYER-2011-004798

PATIENT
  Age: 31 Year
  Sex: Female
  Weight: 81.63 kg

DRUGS (7)
  1. YAZ [Suspect]
     Indication: CONTRACEPTION
     Dosage: UNK
     Dates: start: 2001, end: 2007
  2. YASMIN [Suspect]
     Indication: CONTRACEPTION
     Dosage: UNK
     Dates: start: 2001, end: 2007
  3. SOFTENERS, EMOLLIENTS [Concomitant]
     Dosage: UNK
     Dates: start: 20071120
  4. TUMS [CALCIUM CARBONATE,MAGNESIUM CARBONATE] [Concomitant]
     Dosage: 4 daily
     Dates: start: 20071210
  5. FOLIC ACID [Concomitant]
     Dosage: 4 mg, UNK
     Dates: start: 20071210
  6. FERROUS SULFATE [Concomitant]
     Dosage: 325 mg, UNK
     Dates: start: 20071210
  7. MULTIVITAMIN WITH MINERALS [Concomitant]
     Dosage: UNK
     Dates: start: 20071210

REACTIONS (6)
  - Deep vein thrombosis [None]
  - Thrombosis [Recovered/Resolved]
  - Thrombophlebitis superficial [Recovered/Resolved]
  - Ovarian vein thrombosis [Recovered/Resolved]
  - Pain [Recovered/Resolved]
  - Emotional distress [Recovered/Resolved]
